FAERS Safety Report 24451961 (Version 2)
Quarter: 2024Q4

REPORT INFORMATION
  Report Type: Spontaneous
  Country: US (occurrence: US)
  Receive Date: 20241017
  Receipt Date: 20241101
  Transmission Date: 20250114
  Serious: Yes (Death, Hospitalization)
  Sender: TEVA
  Company Number: US-TEVA-VS-3253710

PATIENT
  Sex: Male

DRUGS (3)
  1. METHOTREXATE [Suspect]
     Active Substance: METHOTREXATE
     Indication: Psoriatic arthropathy
     Dosage: 2.5MG DAILY SIX DAYS PER WEEK SINCE AT LEAST A FEW MONTHS BEFORE PRESENTATION
     Route: 065
  2. LEVETIRACETAM [Suspect]
     Active Substance: LEVETIRACETAM
     Indication: Seizure
     Route: 065
  3. LEUCOVORIN [Suspect]
     Active Substance: LEUCOVORIN\LEUCOVORIN CALCIUM
     Indication: Toxicity to various agents
     Route: 065

REACTIONS (11)
  - Toxicity to various agents [Fatal]
  - Drug interaction [Fatal]
  - Drug ineffective [Fatal]
  - Pustule [Fatal]
  - Epidermal necrosis [Fatal]
  - Hepatic function abnormal [Fatal]
  - Medication error [Fatal]
  - Stomatitis [Fatal]
  - Rash erythematous [Fatal]
  - Acute kidney injury [Fatal]
  - Skin atrophy [Fatal]
